FAERS Safety Report 21564735 (Version 1)
Quarter: 2022Q4

REPORT INFORMATION
  Report Type: Spontaneous
  Country: JP (occurrence: JP)
  Receive Date: 20221108
  Receipt Date: 20221108
  Transmission Date: 20230112
  Serious: Yes (Hospitalization, Other)
  Sender: FDA-Public Use
  Company Number: JP-SA-2022SA449411

PATIENT
  Age: 72 Year
  Sex: Female
  Weight: 49.4 kg

DRUGS (1)
  1. DUPIXENT [Suspect]
     Active Substance: DUPILUMAB
     Indication: Chronic rhinosinusitis with nasal polyps
     Dosage: 300 MG, QOW
     Route: 058

REACTIONS (7)
  - Eosinophilic pneumonia [Recovering/Resolving]
  - Cough [Recovered/Resolved]
  - Dyspnoea [Recovering/Resolving]
  - Decreased appetite [Recovering/Resolving]
  - Hypoalbuminaemia [Unknown]
  - Oedema peripheral [Unknown]
  - Anaemia [Unknown]
